FAERS Safety Report 25650096 (Version 1)
Quarter: 2025Q3

REPORT INFORMATION
  Report Type: Spontaneous
  Country: US (occurrence: US)
  Receive Date: 20250806
  Receipt Date: 20250806
  Transmission Date: 20251021
  Serious: Yes (Other)
  Sender: INCYTE
  Company Number: US-INCYTE CORPORATION-2025IN007903

PATIENT
  Age: 71 Year
  Weight: 80 kg

DRUGS (3)
  1. JAKAFI [Suspect]
     Active Substance: RUXOLITINIB
     Indication: Myelofibrosis
     Dosage: 1 DOSAGE FORM, BID
  2. OJJAARA [Suspect]
     Active Substance: MOMELOTINIB DIHYDROCHLORIDE MONOHYDRATE
     Route: 065
  3. ARANESP [Concomitant]
     Active Substance: DARBEPOETIN ALFA
     Indication: Product used for unknown indication
     Route: 065

REACTIONS (4)
  - Ankle fracture [Unknown]
  - Epistaxis [Recovered/Resolved]
  - Breast pain [Unknown]
  - Dizziness [Recovered/Resolved]
